FAERS Safety Report 6386761-3 (Version None)
Quarter: 2009Q4

REPORT INFORMATION
  Report Type: 
  Country: None (occurrence: None)
  Receive Date: 20091002
  Receipt Date: 20090929
  Transmission Date: 20100525
  Serious: Yes (Hospitalization)
  Sender: FDA-Public Use
  Company Number: A0809555A

PATIENT
  Age: 68 Year
  Sex: Male

DRUGS (9)
  1. ADVAIR DISKUS 100/50 [Suspect]
     Indication: CHRONIC OBSTRUCTIVE PULMONARY DISEASE
     Dosage: 1PUFF TWICE PER DAY
     Route: 055
     Dates: start: 20060101
  2. COMBIVENT [Concomitant]
  3. DUONEB [Concomitant]
  4. ALBUTEROL [Concomitant]
  5. PREDNISONE TAB [Concomitant]
  6. VITAMIN D [Concomitant]
  7. IMITREX [Concomitant]
  8. FIORINAL [Concomitant]
  9. VITAMINS [Concomitant]

REACTIONS (4)
  - ABASIA [None]
  - DYSPNOEA [None]
  - PRODUCT QUALITY ISSUE [None]
  - TOTAL LUNG CAPACITY DECREASED [None]
